FAERS Safety Report 22653259 (Version 1)
Quarter: 2023Q2

REPORT INFORMATION
  Report Type: Report from Study
  Country: ES (occurrence: ES)
  Receive Date: 20230629
  Receipt Date: 20230629
  Transmission Date: 20230722
  Serious: Yes (Life-Threatening, Hospitalization)
  Sender: FDA-Public Use
  Company Number: None

PATIENT
  Age: 69 Year
  Sex: Male

DRUGS (2)
  1. ASPIRIN [Interacting]
     Active Substance: ASPIRIN
     Indication: Myocardial ischaemia
     Dosage: ACETILSALICILICO ACIDO (176A)
     Dates: start: 201707, end: 20221223
  2. CLOPIDOGREL [Interacting]
     Active Substance: CLOPIDOGREL BISULFATE
     Indication: Myocardial ischaemia
     Dosage: CLOPIDOGREL (7300A)
     Dates: start: 202107, end: 20221223

REACTIONS (3)
  - Duodenal ulcer [Recovered/Resolved]
  - Upper gastrointestinal haemorrhage [Recovered/Resolved]
  - Drug interaction [Unknown]

NARRATIVE: CASE EVENT DATE: 20221222
